FAERS Safety Report 8854563 (Version 2)
Quarter: 2012Q4

REPORT INFORMATION
  Report Type: 
  Country: US (occurrence: US)
  Receive Date: 20121023
  Receipt Date: 20121030
  Transmission Date: 20130627
  Serious: No
  Sender: FDA-Public Use
  Company Number: US-VERTEX PHARMACEUTICAL INC.-2012-023027

PATIENT
  Age: 60 Year
  Sex: Female
  Weight: 95 kg

DRUGS (6)
  1. VX-950 [Suspect]
     Indication: HEPATITIS C
     Dosage: 750 mg, tid
     Route: 048
     Dates: start: 201204
  2. PEGINTRON                          /01543001/ [Suspect]
     Indication: HEPATITIS C
     Dosage: 150 �g, UNK
     Route: 058
     Dates: start: 201204, end: 201210
  3. RIBASPHERE [Suspect]
     Indication: HEPATITIS C
     Dosage: 600 mg, bid
     Dates: start: 201204, end: 201210
  4. AMLODIPINE BESYLATE [Concomitant]
     Dosage: UNK, qd
  5. LEVEMIR FLEXPEN [Concomitant]
     Dosage: 60 ut, bid
     Route: 058
  6. NOVOLOG [Concomitant]
     Dosage: 10 ut, prn
     Route: 058

REACTIONS (2)
  - Adverse event [Unknown]
  - Vomiting [Unknown]
